FAERS Safety Report 10079584 (Version 2)
Quarter: 2014Q2

REPORT INFORMATION
  Report Type: Report from Study
  Country: AU (occurrence: AU)
  Receive Date: 20140415
  Receipt Date: 20140617
  Transmission Date: 20141212
  Serious: Yes (Life-Threatening, Hospitalization, Other)
  Sender: FDA-Public Use
  Company Number: AU-GLAXOSMITHKLINE-B0972086A

PATIENT
  Age: 53 Year
  Sex: Male

DRUGS (12)
  1. OFATUMUMAB [Suspect]
     Indication: CHRONIC LYMPHOCYTIC LEUKAEMIA
     Dosage: 1000MG MONTHLY
     Route: 042
     Dates: start: 20130913
  2. INVESTIGATIONAL STUDY DRUG [Suspect]
     Indication: CHRONIC LYMPHOCYTIC LEUKAEMIA
     Dosage: 150MG TWICE PER DAY
     Route: 048
     Dates: start: 20130913
  3. NOVORAPID [Concomitant]
  4. INSULIN [Concomitant]
  5. ATACAND [Concomitant]
     Dates: start: 2001
  6. RESPRIM [Concomitant]
     Dates: start: 2012
  7. MAGNESIUM [Concomitant]
  8. CHLORVESCENT [Concomitant]
  9. ALLOPURINOL [Concomitant]
     Dates: start: 20130904
  10. VALACYCLOVIR [Concomitant]
     Dates: start: 2013
  11. SEPTRIN [Concomitant]
  12. ESOMEPRAZOLE [Concomitant]

REACTIONS (4)
  - Escherichia sepsis [Recovered/Resolved with Sequelae]
  - Shock [Recovered/Resolved with Sequelae]
  - Hypotension [Recovered/Resolved]
  - Respiratory failure [Recovered/Resolved]
